FAERS Safety Report 10904084 (Version 2)
Quarter: 2015Q1

REPORT INFORMATION
  Report Type: Report from Study
  Country: BR (occurrence: BR)
  Receive Date: 20150311
  Receipt Date: 20150320
  Transmission Date: 20150721
  Serious: Yes (Hospitalization, Other)
  Sender: FDA-Public Use
  Company Number: BR-TEVA-545696ISR

PATIENT
  Age: 23 Year
  Sex: Male
  Weight: 98 kg

DRUGS (2)
  1. COPAXONE [Suspect]
     Active Substance: GLATIRAMER ACETATE
     Indication: MULTIPLE SCLEROSIS
     Dosage: 20 MILLIGRAM DAILY; COPAXONE 20MG
     Route: 058
     Dates: start: 20141203
  2. VIDMAX [Concomitant]
     Indication: HEADACHE

REACTIONS (11)
  - Abdominal discomfort [Recovered/Resolved]
  - Immediate post-injection reaction [Recovered/Resolved]
  - Pharyngeal oedema [Recovered/Resolved]
  - Micturition disorder [Recovered/Resolved]
  - Pallor [Recovered/Resolved]
  - Face oedema [Recovered/Resolved]
  - Feeding disorder [Recovered/Resolved]
  - Dizziness [Recovered/Resolved]
  - Frequent bowel movements [Recovered/Resolved]
  - Syncope [Recovered/Resolved]
  - Dysgeusia [Recovered/Resolved]

NARRATIVE: CASE EVENT DATE: 20150131
